FAERS Safety Report 25449743 (Version 1)
Quarter: 2025Q2

REPORT INFORMATION
  Report Type: Report from Study
  Country: US (occurrence: US)
  Receive Date: 20250618
  Receipt Date: 20250618
  Transmission Date: 20250716
  Serious: Yes (Other)
  Sender: RECORDATI
  Company Number: US-ORPHANEU-2025004264

PATIENT
  Age: 30 Year
  Sex: Female

DRUGS (7)
  1. DACTINOMYCIN [Suspect]
     Active Substance: DACTINOMYCIN
     Indication: Rhabdomyosarcoma
  2. DACTINOMYCIN [Suspect]
     Active Substance: DACTINOMYCIN
  3. DACTINOMYCIN [Suspect]
     Active Substance: DACTINOMYCIN
  4. VINCRISTINE [Suspect]
     Active Substance: VINCRISTINE
     Indication: Rhabdomyosarcoma
  5. VINCRISTINE [Suspect]
     Active Substance: VINCRISTINE
  6. CYCLOPHOSPHAMIDE [Suspect]
     Active Substance: CYCLOPHOSPHAMIDE
     Indication: Rhabdomyosarcoma
  7. CYCLOPHOSPHAMIDE [Suspect]
     Active Substance: CYCLOPHOSPHAMIDE

REACTIONS (2)
  - Drug intolerance [Unknown]
  - Toxicity to various agents [Unknown]
